FAERS Safety Report 5630043-1 (Version None)
Quarter: 2008Q1

REPORT INFORMATION
  Report Type: 
  Country: None (occurrence: None)
  Receive Date: 20080218
  Receipt Date: 20080213
  Transmission Date: 20080703
  Serious: Yes (Other)
  Sender: FDA-Public Use
  Company Number: PHHY2008JP01469

PATIENT
  Age: 4 Year
  Sex: Male

DRUGS (4)
  1. ZADITEN [Suspect]
     Dosage: UNK, UNK
     Route: 048
     Dates: start: 20080131
  2. ZESULAN [Concomitant]
  3. CLARITHROMYCIN [Concomitant]
  4. ASVERIN [Concomitant]

REACTIONS (4)
  - AGITATION [None]
  - ERYTHEMA [None]
  - NIGHTMARE [None]
  - PAIN [None]
